FAERS Safety Report 18907857 (Version 2)
Quarter: 2021Q1

REPORT INFORMATION
  Report Type: Spontaneous
  Country: CA (occurrence: CA)
  Receive Date: 20210217
  Receipt Date: 20210319
  Transmission Date: 20210420
  Serious: Yes (Other)
  Sender: FDA-Public Use
  Company Number: CA-SUN PHARMACEUTICAL INDUSTRIES LTD-2021R1-281150

PATIENT
  Sex: Male
  Weight: 2.2 kg

DRUGS (1)
  1. ACETAMINOPHEN. [Suspect]
     Active Substance: ACETAMINOPHEN
     Indication: TOOTHACHE
     Dosage: UNK
     Route: 064

REACTIONS (4)
  - Foetal exposure during pregnancy [Unknown]
  - Toxicity to various agents [Unknown]
  - Premature baby [Unknown]
  - Encephalopathy [Recovering/Resolving]
